FAERS Safety Report 11909505 (Version 1)
Quarter: 2016Q1

REPORT INFORMATION
  Report Type: Spontaneous
  Country: FR (occurrence: FR)
  Receive Date: 20160112
  Receipt Date: 20160112
  Transmission Date: 20160526
  Serious: Yes (Hospitalization, Other)
  Sender: FDA-Public Use
  Company Number: FR-ASTRAZENECA-2016SE01718

PATIENT
  Age: 73 Year
  Sex: Female

DRUGS (8)
  1. LEVOTHYROX [Concomitant]
     Active Substance: LEVOTHYROXINE
     Route: 048
  2. HYDROCORTISONE. [Concomitant]
     Active Substance: HYDROCORTISONE
     Route: 048
  3. NORSET [Concomitant]
     Active Substance: MIRTAZAPINE
     Route: 048
  4. MIKICORT [Concomitant]
     Route: 048
  5. XEROQUEL [Suspect]
     Active Substance: QUETIAPINE FUMARATE
     Route: 048
     Dates: start: 20150707, end: 20150914
  6. KALEORID [Concomitant]
     Active Substance: POTASSIUM CHLORIDE
     Route: 048
  7. VITAMINE B12 [Concomitant]
     Route: 048
  8. INEXIUM [Concomitant]
     Active Substance: ESOMEPRAZOLE
     Route: 048

REACTIONS (12)
  - Vertigo [Recovered/Resolved]
  - Nausea [Recovered/Resolved]
  - Major depression [Unknown]
  - Hypokalaemia [Unknown]
  - Vision blurred [Recovered/Resolved]
  - Urinary retention [Recovered/Resolved]
  - Constipation [Recovered/Resolved]
  - Arrhythmia supraventricular [Unknown]
  - Therapy cessation [Unknown]
  - Anticholinergic syndrome [Recovered/Resolved]
  - Psychotic disorder [Not Recovered/Not Resolved]
  - Dry mouth [Recovered/Resolved]

NARRATIVE: CASE EVENT DATE: 201507
